FAERS Safety Report 7841343-9 (Version None)
Quarter: 2011Q4

REPORT INFORMATION
  Report Type: 
  Country: None (occurrence: None)
  Receive Date: 20111025
  Receipt Date: 20111013
  Transmission Date: 20120403
  Serious: Yes (Other)
  Sender: FDA-Public Use
  Company Number: BR-JNJFOC-20111006270

PATIENT
  Age: 44 Year
  Sex: Female

DRUGS (1)
  1. REMICADE [Suspect]
     Indication: PSORIASIS
     Route: 042
     Dates: end: 20111001

REACTIONS (4)
  - INFUSION RELATED REACTION [None]
  - DRUG ERUPTION [None]
  - OXYGEN SATURATION DECREASED [None]
  - DYSPNOEA [None]
